FAERS Safety Report 12347383 (Version 4)
Quarter: 2016Q4

REPORT INFORMATION
  Report Type: Spontaneous
  Country: FR (occurrence: FR)
  Receive Date: 20160509
  Receipt Date: 20161230
  Transmission Date: 20170207
  Serious: Yes (Life-Threatening)
  Sender: FDA-Public Use
  Company Number: FR-SA-2016SA088576

PATIENT
  Age: 63 Year
  Sex: Male

DRUGS (8)
  1. DOLIPRANE [Suspect]
     Active Substance: ACETAMINOPHEN
     Indication: SPINAL OSTEOARTHRITIS
     Dosage: 1000 MG
     Route: 048
     Dates: end: 20160220
  2. FEXOFENADINE HYDROCHLORIDE. [Suspect]
     Active Substance: FEXOFENADINE HYDROCHLORIDE
     Indication: PRURITUS
     Route: 048
     Dates: start: 20160111, end: 20160125
  3. STROMECTOL [Suspect]
     Active Substance: IVERMECTIN
     Indication: PRURITUS
     Route: 048
     Dates: start: 20160118, end: 20160118
  4. LOCOID [Concomitant]
     Active Substance: HYDROCORTISONE BUTYRATE
     Dosage: 0.1%, CREAM
     Route: 061
     Dates: start: 20160111, end: 20160118
  5. DIPROSONE [Concomitant]
     Active Substance: BETAMETHASONE DIPROPIONATE
     Route: 061
     Dates: start: 20160202
  6. ATARAX [Suspect]
     Active Substance: HYDROXYZINE\HYDROXYZINE HYDROCHLORIDE
     Indication: PRURITUS
     Route: 048
     Dates: start: 20160125, end: 20160314
  7. KERLONE [Concomitant]
     Active Substance: BETAXOLOL HYDROCHLORIDE
     Indication: HYPERTENSION
     Dosage: 20 MG
     Route: 065
     Dates: start: 1999
  8. MAXIDEX [Concomitant]
     Active Substance: DEXAMETHASONE
     Route: 047
     Dates: start: 20160111, end: 20160119

REACTIONS (1)
  - Hepatic necrosis [Recovered/Resolved]

NARRATIVE: CASE EVENT DATE: 20160220
